FAERS Safety Report 15672091 (Version 3)
Quarter: 2019Q1

REPORT INFORMATION
  Report Type: Report from Study
  Country: US (occurrence: US)
  Receive Date: 20181129
  Receipt Date: 20190222
  Transmission Date: 20190417
  Serious: Yes (Hospitalization, Other)
  Sender: FDA-Public Use
  Company Number: US-TESARO-US-2018TSO01276

PATIENT
  Age: 63 Year
  Sex: Female
  Weight: 119.7 kg

DRUGS (4)
  1. ZEJULA [Suspect]
     Active Substance: NIRAPARIB
     Dosage: 200 MG, QD
     Route: 048
  2. ZEJULA [Suspect]
     Active Substance: NIRAPARIB
     Dosage: 200 MG, QD
     Route: 048
  3. ZEJULA [Suspect]
     Active Substance: NIRAPARIB
     Dosage: 100 MG, QPM WITH FOOD
     Route: 048
  4. ZEJULA [Suspect]
     Active Substance: NIRAPARIB
     Indication: OVARIAN CANCER
     Dosage: 200 MG, QD
     Route: 048
     Dates: start: 20170713

REACTIONS (11)
  - Inflammation [Unknown]
  - Full blood count decreased [Unknown]
  - Laboratory test abnormal [Unknown]
  - Protein albumin ratio decreased [Unknown]
  - Cellulitis [Unknown]
  - Red blood cell count decreased [Unknown]
  - Haemoglobin decreased [Not Recovered/Not Resolved]
  - Peripheral swelling [Unknown]
  - Platelet count decreased [Not Recovered/Not Resolved]
  - Haematocrit decreased [Not Recovered/Not Resolved]
  - Erythema [Unknown]

NARRATIVE: CASE EVENT DATE: 201901
